FAERS Safety Report 6228521-X (Version None)
Quarter: 2009Q2

REPORT INFORMATION
  Report Type: 
  Country: None (occurrence: None)
  Receive Date: 20090612
  Receipt Date: 20090604
  Transmission Date: 20091009
  Serious: Yes (Hospitalization)
  Sender: FDA-Public Use
  Company Number: DE-B.I. PHARMACEUTICALS,INC./RIDGEFIELD-2009-DE-04142DE

PATIENT
  Age: 76 Year
  Sex: Male
  Weight: 85 kg

DRUGS (8)
  1. TAMSULOSIN HCL [Suspect]
     Indication: BENIGN PROSTATIC HYPERPLASIA
     Dosage: 1ANZ
     Route: 048
     Dates: start: 20080901
  2. BISOPROLOL [Concomitant]
     Indication: HYPERTENSION
     Dosage: 7.5MG
     Route: 048
  3. FALITHROM [Concomitant]
     Indication: PROPHYLAXIS
     Dosage: DOSAGE ACCORDING TO VALUE
     Route: 048
     Dates: start: 20020101
  4. FINURAL [Concomitant]
     Indication: BENIGN PROSTATIC HYPERPLASIA
     Dosage: 5MG
     Route: 048
  5. GLIMEPIRIDE [Concomitant]
     Indication: TYPE 2 DIABETES MELLITUS
     Dosage: 1MG
     Route: 048
  6. LORZAAR [Concomitant]
     Indication: HYPERTENSION
     Dosage: 50MG
     Route: 048
  7. MOLSIHEXAL [Concomitant]
     Indication: CORONARY ARTERY DISEASE
     Dosage: 4MG
     Route: 048
  8. SIMVAHEXAL [Concomitant]
     Indication: HYPERCHOLESTEROLAEMIA
     Dosage: 20MG
     Route: 048

REACTIONS (1)
  - SYNCOPE [None]
